FAERS Safety Report 6892578-3 (Version None)
Quarter: 2010Q3

REPORT INFORMATION
  Report Type: 
  Country: None (occurrence: None)
  Receive Date: 20100731
  Receipt Date: 20080707
  Transmission Date: 20110219
  Serious: No
  Sender: FDA-Public Use
  Company Number: US-PFIZER INC-2008057778

PATIENT
  Sex: Female
  Weight: 53.6 kg

DRUGS (2)
  1. NEURONTIN [Suspect]
     Indication: HERPES ZOSTER
     Dates: start: 20080601
  2. ACETAMINOPHEN [Concomitant]

REACTIONS (6)
  - HEADACHE [None]
  - INAPPROPRIATE SCHEDULE OF DRUG ADMINISTRATION [None]
  - NAUSEA [None]
  - STRESS [None]
  - TENSION [None]
  - WRONG TECHNIQUE IN DRUG USAGE PROCESS [None]
